FAERS Safety Report 19509307 (Version 1)
Quarter: 2021Q3

REPORT INFORMATION
  Report Type: Spontaneous
  Country: US (occurrence: US)
  Receive Date: 20210709
  Receipt Date: 20210709
  Transmission Date: 20211014
  Serious: No
  Sender: FDA-Public Use
  Company Number: US-PRINSTON PHARMACEUTICAL INC.-2021PRN00042

PATIENT
  Sex: Female

DRUGS (1)
  1. CLONAZEPAM. [Suspect]
     Active Substance: CLONAZEPAM
     Indication: ANXIETY
     Dosage: 0.5 MG (HALF TABLET)
     Dates: end: 20210128

REACTIONS (4)
  - Palpitations [Recovering/Resolving]
  - Reaction to excipient [Recovering/Resolving]
  - Malaise [Recovering/Resolving]
  - Off label use [Recovered/Resolved]
